FAERS Safety Report 15644346 (Version 1)
Quarter: 2018Q4

REPORT INFORMATION
  Report Type: Spontaneous
  Country: FR (occurrence: FR)
  Receive Date: 20181121
  Receipt Date: 20181121
  Transmission Date: 20190205
  Serious: Yes (Hospitalization)
  Sender: FDA-Public Use
  Company Number: FR-PROVELL PHARMACEUTICALS-2059156

PATIENT
  Age: 55 Year
  Sex: Female
  Weight: 58 kg

DRUGS (2)
  1. EUTHYROX [Suspect]
     Active Substance: LEVOTHYROXINE SODIUM
     Indication: HYPOTHYROIDISM
     Dates: start: 20170315, end: 201708
  2. KARDEGIC( [Concomitant]

REACTIONS (13)
  - Headache [None]
  - Meniere^s disease [None]
  - Gamma-glutamyltransferase increased [None]
  - Asthenia [Recovering/Resolving]
  - Oculomotor study abnormal [None]
  - Mean cell haemoglobin increased [Recovered/Resolved]
  - Carotid arteriosclerosis [None]
  - Fatigue [None]
  - Blood thyroid stimulating hormone decreased [None]
  - Blood pressure increased [None]
  - Palpitations [None]
  - Sinusitis [None]
  - Muscle spasms [None]

NARRATIVE: CASE EVENT DATE: 20170627
